FAERS Safety Report 18083351 (Version 1)
Quarter: 2020Q3

REPORT INFORMATION
  Report Type: Other
  Country: JP (occurrence: JP)
  Receive Date: 20200729
  Receipt Date: 20200729
  Transmission Date: 20201103
  Serious: Yes (Hospitalization, Other)
  Sender: FDA-Public Use
  Company Number: JP-DEXPHARM-20200640

PATIENT
  Age: 72 Year
  Sex: Male

DRUGS (8)
  1. LOXOPROFEN SODIUM HYDRATE [Concomitant]
     Active Substance: LOXOPROFEN SODIUM DIHYDRATE
  2. OMEPRAZOLE. [Suspect]
     Active Substance: OMEPRAZOLE
  3. TELMISARTAN. [Concomitant]
     Active Substance: TELMISARTAN
  4. AZULENE SODIUM SULFONATE [Concomitant]
     Active Substance: SODIUM DECAHYDROAZULENE-1-SULFONATE
  5. TEPRENONE [Concomitant]
     Active Substance: TEPRENONE
  6. EPERISONE [Concomitant]
     Active Substance: EPERISONE
  7. POTASSIUM CHLORIDE. [Concomitant]
     Active Substance: POTASSIUM CHLORIDE
  8. ALLOPURINOL. [Concomitant]
     Active Substance: ALLOPURINOL

REACTIONS (1)
  - Renal tubular acidosis [Recovered/Resolved]
